FAERS Safety Report 5814685-6 (Version None)
Quarter: 2008Q3

REPORT INFORMATION
  Report Type: 
  Country: None (occurrence: None)
  Receive Date: 20080718
  Receipt Date: 20080409
  Transmission Date: 20090109
  Serious: No
  Sender: FDA-Public Use
  Company Number: US-KINGPHARMUSA00001-K200800431

PATIENT

DRUGS (5)
  1. LEVOXYL [Suspect]
     Indication: BASEDOW'S DISEASE
     Dosage: 50 MCG, QD
     Route: 048
     Dates: start: 20071111
  2. LEVOXYL [Interacting]
     Dosage: 100 MCG, QD
     Route: 048
  3. PARNATE                            /00071701/ [Interacting]
     Indication: BIPOLAR DISORDER
     Dosage: 2.5 MG, PRN
     Dates: start: 19870101
  4. PHENOBARBITAL TAB [Concomitant]
     Dosage: UNK, PRN
  5. VALIUM [Concomitant]
     Dosage: UNK, PRN

REACTIONS (13)
  - ABDOMINAL PAIN UPPER [None]
  - ARTHRITIS [None]
  - CHEST DISCOMFORT [None]
  - DRUG INTERACTION [None]
  - DYSPNOEA [None]
  - GASTROOESOPHAGEAL REFLUX DISEASE [None]
  - HEADACHE [None]
  - HYPERSOMNIA [None]
  - HYPOAESTHESIA [None]
  - MUSCLE SPASMS [None]
  - MUSCULOSKELETAL STIFFNESS [None]
  - URTICARIA [None]
  - WEIGHT INCREASED [None]
